FAERS Safety Report 5904407-2 (Version None)
Quarter: 2008Q4

REPORT INFORMATION
  Report Type: 
  Country: None (occurrence: None)
  Receive Date: 20081001
  Receipt Date: 20080930
  Transmission Date: 20090506
  Serious: Yes (Other)
  Sender: FDA-Public Use
  Company Number: FR-BRISTOL-MYERS SQUIBB COMPANY-14341010

PATIENT
  Age: 60 Year
  Sex: Male

DRUGS (2)
  1. BARACLUDE [Suspect]
     Dates: start: 20071228, end: 20080110
  2. MOPRAL [Concomitant]
     Indication: PAIN
     Dosage: 1 DF=1TABLET
     Dates: start: 20071226

REACTIONS (1)
  - TOXIC EPIDERMAL NECROLYSIS [None]
